FAERS Safety Report 18581584 (Version 2)
Quarter: 2020Q4

REPORT INFORMATION
  Report Type: Report from Study
  Country: BR (occurrence: BR)
  Receive Date: 20201204
  Receipt Date: 20201222
  Transmission Date: 20210114
  Serious: Yes (Other)
  Sender: FDA-Public Use
  Company Number: NVSC2020BR317946

PATIENT
  Age: 81 Year
  Sex: Female
  Weight: 70.2 kg

DRUGS (9)
  1. DIOVAN HCT [Suspect]
     Active Substance: HYDROCHLOROTHIAZIDE\VALSARTAN
     Indication: HYPERTENSION
     Dosage: UNK
     Route: 065
  2. DIOVAN HCT [Suspect]
     Active Substance: HYDROCHLOROTHIAZIDE\VALSARTAN
     Dosage: 1 DF, QD (320/12.5MG)
     Route: 048
  3. SELOZOK [Concomitant]
     Active Substance: METOPROLOL SUCCINATE
     Indication: ARRHYTHMIA
     Dosage: 1 DF, BID
     Route: 048
  4. DIOVAN [Suspect]
     Active Substance: VALSARTAN
     Indication: PRODUCT USED FOR UNKNOWN INDICATION
     Dosage: UNK
     Route: 065
  5. ACETYLSALICYLIC ACID [Concomitant]
     Active Substance: ASPIRIN
     Indication: VARICOSE VEIN
     Dosage: 1 DF, BID, DAY IN DAY OUT
     Route: 048
  6. DIOVAN HCT [Suspect]
     Active Substance: HYDROCHLOROTHIAZIDE\VALSARTAN
     Dosage: 1 DF, QD (160/12.5MG)
     Route: 048
  7. ACETYLSALICYLIC ACID [Concomitant]
     Active Substance: ASPIRIN
     Indication: ANTICOAGULANT THERAPY
  8. DIOVAN HCT [Suspect]
     Active Substance: HYDROCHLOROTHIAZIDE\VALSARTAN
     Dosage: UNK (320+12.5), 2 YEARS AGO
     Route: 065
  9. DAFLON [Concomitant]
     Indication: VARICOSE VEIN
     Dosage: 1 DF, BID
     Route: 048

REACTIONS (19)
  - Feeling abnormal [Recovered/Resolved]
  - Blood pressure increased [Recovered/Resolved]
  - Rheumatic disorder [Unknown]
  - Pain in extremity [Recovered/Resolved]
  - Blood pressure abnormal [Unknown]
  - Memory impairment [Unknown]
  - Limb discomfort [Recovered/Resolved]
  - Joint effusion [Not Recovered/Not Resolved]
  - Pain [Recovered/Resolved]
  - Arthritis [Not Recovered/Not Resolved]
  - Osteoarthritis [Unknown]
  - Nausea [Recovered/Resolved]
  - Fatigue [Not Recovered/Not Resolved]
  - Shock [Recovered/Resolved]
  - Nerve compression [Unknown]
  - Head discomfort [Unknown]
  - Bursitis [Recovered/Resolved]
  - Cholelithiasis [Not Recovered/Not Resolved]
  - Arthralgia [Recovered/Resolved]

NARRATIVE: CASE EVENT DATE: 202008
